FAERS Safety Report 22136271 (Version 1)
Quarter: 2023Q1

REPORT INFORMATION
  Report Type: Spontaneous
  Country: CN (occurrence: CN)
  Receive Date: 20230324
  Receipt Date: 20230324
  Transmission Date: 20230418
  Serious: Yes (Life-Threatening, Hospitalization)
  Sender: FDA-Public Use
  Company Number: CN-BoehringerIngelheim-2023-BI-226223

PATIENT
  Age: 79 Year
  Sex: Female
  Weight: 35 kg

DRUGS (2)
  1. ALTEPLASE [Suspect]
     Active Substance: ALTEPLASE
     Indication: Arteriosclerosis coronary artery
     Route: 042
     Dates: start: 20230227, end: 20230227
  2. ALTEPLASE [Suspect]
     Active Substance: ALTEPLASE
     Route: 042
     Dates: start: 20230227, end: 20230227

REACTIONS (5)
  - Basal ganglia haemorrhage [Recovering/Resolving]
  - Brain oedema [Recovering/Resolving]
  - Gingival bleeding [Recovering/Resolving]
  - Headache [Recovering/Resolving]
  - Dysphoria [Recovering/Resolving]

NARRATIVE: CASE EVENT DATE: 20230227
